FAERS Safety Report 16118905 (Version 1)
Quarter: 2019Q1

REPORT INFORMATION
  Report Type: Report from Study
  Country: IT (occurrence: IT)
  Receive Date: 20190326
  Receipt Date: 20190326
  Transmission Date: 20190418
  Serious: Yes (Other)
  Sender: FDA-Public Use
  Company Number: IT-DIAGNOSTIC GREEN GMBH-2064640

PATIENT
  Age: 47 Year
  Sex: Male
  Weight: 86 kg

DRUGS (2)
  1. FLUORESCEIN SODIUM. [Concomitant]
     Active Substance: FLUORESCEIN SODIUM
     Dates: start: 20190221, end: 20190221
  2. INDOCYANINE GREEN FOR INJECTION USP, 25 MG [Suspect]
     Active Substance: INDOCYANINE GREEN
     Indication: ANGIOGRAM
     Route: 042
     Dates: start: 20190221, end: 20190221

REACTIONS (3)
  - Urticaria [Recovered/Resolved]
  - Pruritus generalised [Recovered/Resolved]
  - Throat tightness [Recovered/Resolved]

NARRATIVE: CASE EVENT DATE: 20190221
